FAERS Safety Report 9162963 (Version 1)
Quarter: 2013Q1

REPORT INFORMATION
  Report Type: Spontaneous
  Country: US (occurrence: None)
  Receive Date: 20130313
  Receipt Date: 20130313
  Transmission Date: 20140127
  Serious: Yes (Hospitalization)
  Sender: FDA-Public Use
  Company Number: None

PATIENT
  Age: 74 Year
  Sex: Male
  Weight: 83.8 kg

DRUGS (2)
  1. AMOXICILLIN/CLAVULANATE POTASSIUM [Suspect]
     Route: 048
     Dates: start: 20130130, end: 20130201
  2. LISINOPRIL [Suspect]
     Route: 048
     Dates: start: 20130130, end: 20130201

REACTIONS (4)
  - Swollen tongue [None]
  - Pharyngeal oedema [None]
  - Pruritus [None]
  - Angioedema [None]
